FAERS Safety Report 5073863-7 (Version None)
Quarter: 2006Q3

REPORT INFORMATION
  Report Type: 
  Country: None (occurrence: None)
  Receive Date: 20060808
  Receipt Date: 20060731
  Transmission Date: 20061208
  Serious: Yes (Other)
  Sender: FDA-Public Use
  Company Number: 2006AC01410

PATIENT
  Age: 751 Month
  Sex: Male

DRUGS (4)
  1. CRESTOR [Suspect]
     Indication: HYPERCHOLESTEROLAEMIA
     Route: 048
     Dates: start: 20050701
  2. ATENOLOL [Concomitant]
  3. PLAVIX [Concomitant]
  4. SERETIDE [Concomitant]

REACTIONS (2)
  - APHONIA [None]
  - POLYP [None]
